FAERS Safety Report 7304358-5 (Version None)
Quarter: 2011Q1

REPORT INFORMATION
  Report Type: 
  Country: None (occurrence: None)
  Receive Date: 20110221
  Receipt Date: 20110209
  Transmission Date: 20110831
  Serious: Yes (Hospitalization)
  Sender: FDA-Public Use
  Company Number: IE-GENENTECH-313822

PATIENT
  Age: 70 Year
  Sex: Male

DRUGS (5)
  1. PREDNISOLONE [Concomitant]
     Indication: PROLYMPHOCYTIC LEUKAEMIA
     Dosage: UNK
  2. MABTHERA [Suspect]
     Indication: PROLYMPHOCYTIC LEUKAEMIA
     Dosage: UNK
     Route: 065
  3. VINCRISTINE [Concomitant]
     Indication: PROLYMPHOCYTIC LEUKAEMIA
     Dosage: UNK
  4. DOXORUBICIN [Suspect]
     Indication: PROLYMPHOCYTIC LEUKAEMIA
     Dosage: UNK
     Route: 065
  5. CYCLOPHOSPHAMIDE [Concomitant]
     Indication: PROLYMPHOCYTIC LEUKAEMIA
     Dosage: UNK

REACTIONS (1)
  - ADVERSE DRUG REACTION [None]
